FAERS Safety Report 16710769 (Version 4)
Quarter: 2019Q3

REPORT INFORMATION
  Report Type: Spontaneous
  Country: DE (occurrence: DE)
  Receive Date: 20190816
  Receipt Date: 20190918
  Transmission Date: 20191004
  Serious: Yes (Other)
  Sender: FDA-Public Use
  Company Number: DE-ASTRAZENECA-2019SF17234

PATIENT
  Sex: Female

DRUGS (11)
  1. ROACTEMRA [Suspect]
     Active Substance: TOCILIZUMAB
     Indication: RHEUMATOID ARTHRITIS
     Route: 065
  2. PREGABALIN. [Suspect]
     Active Substance: PREGABALIN
     Dosage: 1 DF, TID (1 - 1 - 1)
     Route: 065
  3. OMEPRAZOLE. [Suspect]
     Active Substance: OMEPRAZOLE
     Dosage: 1 DF, BID (1 - 0 - 1)
     Route: 048
  4. RAMIPRIL. [Suspect]
     Active Substance: RAMIPRIL
     Dosage: 1 DF, BID (1 - 0 - 1)
     Route: 048
  5. QUENSYL [Suspect]
     Active Substance: HYDROXYCHLOROQUINE
     Dosage: 1 DF, BID (1 ? 0 - 1)
     Route: 065
  6. SPASMOLYT [Suspect]
     Active Substance: TROSPIUM CHLORIDE
     Dosage: 30 MG (0 -0 -1)
     Route: 065
  7. ROACTEMRA [Suspect]
     Active Substance: TOCILIZUMAB
     Indication: RHEUMATOID ARTHRITIS
     Route: 065
  8. VOLIBRIS [Suspect]
     Active Substance: AMBRISENTAN
     Dosage: UNK
     Route: 065
  9. AMBRISENTAN [Suspect]
     Active Substance: AMBRISENTAN
     Route: 065
  10. SPASMOLYT [Suspect]
     Active Substance: TROSPIUM CHLORIDE
     Dosage: 1 DOSAGE FORM, 15 (UNIT UNSPECIFIED), QD (1-0-0)
     Route: 065
  11. ELIQUIS [Suspect]
     Active Substance: APIXABAN
     Dosage: 1 DF, BID (1 - 0 - 1)
     Route: 065

REACTIONS (5)
  - Arthralgia [Not Recovered/Not Resolved]
  - Pulmonary hypertension [Not Recovered/Not Resolved]
  - Oedema peripheral [Recovering/Resolving]
  - Therapy cessation [Unknown]
  - Nasopharyngitis [Recovered/Resolved]

NARRATIVE: CASE EVENT DATE: 201811
